FAERS Safety Report 6571317-X (Version None)
Quarter: 2010Q1

REPORT INFORMATION
  Report Type: 
  Country: None (occurrence: None)
  Receive Date: 20100201
  Receipt Date: 20100121
  Transmission Date: 20100710
  Serious: No
  Sender: FDA-Public Use
  Company Number: 20108033

PATIENT
  Age: 49 Year
  Sex: Female

DRUGS (1)
  1. LIORESAL [Suspect]
     Indication: MUSCLE SPASTICITY
     Dosage: 100.05 MCG, DAILY, INTRATHECAL
     Route: 037

REACTIONS (4)
  - DRUG LEVEL BELOW THERAPEUTIC [None]
  - MEDICAL DEVICE COMPLICATION [None]
  - MENTAL DISORDER [None]
  - MUSCLE SPASMS [None]
